FAERS Safety Report 11809636 (Version 3)
Quarter: 2016Q1

REPORT INFORMATION
  Report Type: Report from Study
  Country: US (occurrence: US)
  Receive Date: 20151208
  Receipt Date: 20160330
  Transmission Date: 20160525
  Serious: No
  Sender: FDA-Public Use
  Company Number: US-AMGEN-USASL2015127510

PATIENT
  Age: 35 Year
  Sex: Female

DRUGS (1)
  1. ENBREL [Suspect]
     Active Substance: ETANERCEPT
     Indication: ANKYLOSING SPONDYLITIS
     Dosage: 50 MG, QWK
     Route: 065
     Dates: start: 20151115

REACTIONS (6)
  - Musculoskeletal stiffness [Recovering/Resolving]
  - Injection site rash [Unknown]
  - Injection site pain [Unknown]
  - Vomiting [Unknown]
  - Neuralgia [Unknown]
  - Nausea [Unknown]

NARRATIVE: CASE EVENT DATE: 201511
